FAERS Safety Report 10218710 (Version 1)
Quarter: 2014Q2

REPORT INFORMATION
  Report Type: Spontaneous
  Country: US (occurrence: US)
  Receive Date: 20140605
  Receipt Date: 20140605
  Transmission Date: 20141212
  Serious: No
  Sender: FDA-Public Use
  Company Number: US-PFIZER INC-2014154793

PATIENT
  Age: 69 Year
  Sex: Female
  Weight: 78.46 kg

DRUGS (5)
  1. EFFEXOR [Suspect]
     Dosage: UNK
  2. CHLORTHALIDONE [Concomitant]
     Indication: FLUID IMBALANCE
     Dosage: 25 MG, 1X/DAY
  3. CETIRIZINE [Concomitant]
     Dosage: 10 MG, 1X/DAY
  4. OMEPRAZOLE [Concomitant]
     Dosage: 20 MG, 1X/DAY
  5. PREMARIN [Concomitant]
     Dosage: 1.25 MG, 1X/DAY

REACTIONS (1)
  - Hyperhidrosis [Unknown]
